FAERS Safety Report 13467504 (Version 12)
Quarter: 2018Q4

REPORT INFORMATION
  Report Type: Report from Study
  Country: US (occurrence: US)
  Receive Date: 20170421
  Receipt Date: 20181121
  Transmission Date: 20190204
  Serious: Yes (Hospitalization)
  Sender: FDA-Public Use
  Company Number: US-PFIZER INC-2016561454

PATIENT
  Age: 70 Year
  Sex: Male
  Weight: 157.3 kg

DRUGS (16)
  1. SUTENT [Suspect]
     Active Substance: SUNITINIB MALATE
     Indication: RENAL CANCER METASTATIC
     Dosage: 50 MG, CYCLIC (DAILY FOR 4 WEEKS ON, FOLLOWED BY 2 WEEKS OFF)
     Route: 048
     Dates: start: 201610, end: 201704
  2. COUMADIN [Concomitant]
     Active Substance: WARFARIN SODIUM
     Dosage: UNK
  3. LIPITOR [Concomitant]
     Active Substance: ATORVASTATIN CALCIUM
     Dosage: UNK
  4. BABY ASPIRIN [Concomitant]
     Active Substance: ASPIRIN
     Dosage: UNK
  5. SUTENT [Suspect]
     Active Substance: SUNITINIB MALATE
     Dosage: 37.5MG (ONCE DAILY FOR 4 WEEKS(28DAYS) ON, 2 WEEKS (14DAYS) OFF
     Route: 048
     Dates: start: 20170417
  6. ZANAFLEX [Concomitant]
     Active Substance: TIZANIDINE HYDROCHLORIDE
     Dosage: UNK, AS NEEDED
  7. SUTENT [Suspect]
     Active Substance: SUNITINIB MALATE
     Dosage: 25 MG, DAILY
     Dates: start: 20180803
  8. LEVOTHYROXINE. [Concomitant]
     Active Substance: LEVOTHYROXINE
     Dosage: UNK
     Dates: start: 2017
  9. VITAMIN D [Concomitant]
     Active Substance: CHOLECALCIFEROL
     Dosage: UNK
  10. SUTENT [Suspect]
     Active Substance: SUNITINIB MALATE
     Dosage: 25 MG, CYCLIC (DAILY FOR 28 DAYS ON/14 DAYS OFF)
     Route: 048
  11. SUTENT [Suspect]
     Active Substance: SUNITINIB MALATE
     Dosage: 25 MG, CYCLIC (2 WEEKS ON / 1WEEK OFF)
  12. LASIX [Concomitant]
     Active Substance: FUROSEMIDE
     Dosage: UNK
  13. ATORVASTATIN [Concomitant]
     Active Substance: ATORVASTATIN
     Dosage: UNK
  14. SUTENT [Suspect]
     Active Substance: SUNITINIB MALATE
     Dosage: 50 MG, CYCLIC (DAILY FOR 4 WEEKS ON, FOLLOWED BY 2 WEEKS OFF)
     Route: 048
     Dates: start: 20170408, end: 20170409
  15. METOPROLOL. [Concomitant]
     Active Substance: METOPROLOL
     Dosage: UNK
  16. ZANTAC [Concomitant]
     Active Substance: RANITIDINE HYDROCHLORIDE
     Dosage: UNK

REACTIONS (26)
  - Fatigue [Recovering/Resolving]
  - Discomfort [Unknown]
  - Hypothyroidism [Unknown]
  - Ejection fraction decreased [Unknown]
  - Wound [Recovering/Resolving]
  - Lung disorder [Unknown]
  - Infection [Unknown]
  - Alopecia [Not Recovered/Not Resolved]
  - Diarrhoea [Recovering/Resolving]
  - Joint swelling [Recovered/Resolved]
  - International normalised ratio fluctuation [Unknown]
  - Chromaturia [Unknown]
  - Blood creatinine increased [Recovering/Resolving]
  - Chest discomfort [Unknown]
  - Sciatica [Unknown]
  - Pain [Unknown]
  - Dyspnoea [Unknown]
  - Cardiac stress test abnormal [Unknown]
  - Abscess [Unknown]
  - Dysgeusia [Recovering/Resolving]
  - Constipation [Unknown]
  - Dyspepsia [Unknown]
  - Peripheral swelling [Recovering/Resolving]
  - Ageusia [Unknown]
  - Nausea [Recovering/Resolving]
  - Rash [Recovering/Resolving]

NARRATIVE: CASE EVENT DATE: 2016
